FAERS Safety Report 9464487 (Version 1)
Quarter: 2013Q3

REPORT INFORMATION
  Report Type: Spontaneous
  Country: US (occurrence: US)
  Receive Date: 20130819
  Receipt Date: 20130819
  Transmission Date: 20140515
  Serious: Yes (Other)
  Sender: FDA-Public Use
  Company Number: US-PFIZER INC-2013239008

PATIENT
  Age: 53 Year
  Sex: Female
  Weight: 58.96 kg

DRUGS (4)
  1. LIPITOR [Suspect]
     Indication: BLOOD CHOLESTEROL INCREASED
     Dosage: 80 MG, ONCE A DAY
     Route: 048
     Dates: start: 2009, end: 2012
  2. LIPITOR [Suspect]
     Dosage: 80 MG, ONCE A DAY
     Route: 048
     Dates: start: 2012, end: 201308
  3. LIPITOR [Suspect]
     Dosage: 80 MG, ONCE A DAY
     Route: 048
     Dates: start: 201308
  4. ZETIA [Concomitant]
     Dosage: UNK

REACTIONS (1)
  - Blood glucose increased [Unknown]
